FAERS Safety Report 11271652 (Version 2)
Quarter: 2015Q4

REPORT INFORMATION
  Report Type: Report from Study
  Country: US (occurrence: US)
  Receive Date: 20150715
  Receipt Date: 20151023
  Transmission Date: 20160304
  Serious: No
  Sender: FDA-Public Use
  Company Number: US-AMGEN-USASP2015069358

PATIENT
  Age: 45 Year
  Sex: Female

DRUGS (1)
  1. ENBREL [Suspect]
     Active Substance: ETANERCEPT
     Indication: RHEUMATOID ARTHRITIS
     Dosage: 50 MG, QWK
     Route: 065
     Dates: start: 20040517

REACTIONS (9)
  - Bone disorder [Not Recovered/Not Resolved]
  - Malaise [Not Recovered/Not Resolved]
  - Injection site discolouration [Unknown]
  - Wrong technique in product usage process [Unknown]
  - Injection site vesicles [Unknown]
  - Inappropriate schedule of drug administration [Unknown]
  - Injection site pain [Unknown]
  - Arthropathy [Not Recovered/Not Resolved]
  - Joint swelling [Not Recovered/Not Resolved]

NARRATIVE: CASE EVENT DATE: 201502
